FAERS Safety Report 12966478 (Version 1)
Quarter: 2016Q4

REPORT INFORMATION
  Report Type: Spontaneous
  Country: GB (occurrence: GB)
  Receive Date: 20161122
  Receipt Date: 20161122
  Transmission Date: 20170207
  Serious: Yes (Death)
  Sender: FDA-Public Use
  Company Number: GB-INTERNATIONAL MEDICATION SYSTEMS, LIMITED-1059978

PATIENT
  Age: 53 Year
  Sex: Male

DRUGS (3)
  1. MORPHINE [Suspect]
     Active Substance: MORPHINE
  2. HEROIN [Suspect]
     Active Substance: DIACETYLMORPHINE
  3. LYRICA [Suspect]
     Active Substance: PREGABALIN

REACTIONS (3)
  - Pneumonia [Fatal]
  - Death [Fatal]
  - Drug abuse [Unknown]
